FAERS Safety Report 18734426 (Version 1)
Quarter: 2021Q1

REPORT INFORMATION
  Report Type: Spontaneous
  Country: US (occurrence: US)
  Receive Date: 20210112
  Receipt Date: 20210112
  Transmission Date: 20210419
  Serious: Yes (Life-Threatening)
  Sender: FDA-Public Use
  Company Number: None

PATIENT
  Age: 66 Year
  Sex: Female
  Weight: 76.5 kg

DRUGS (9)
  1. DICLOFENAC [Concomitant]
     Active Substance: DICLOFENAC
  2. PROBIOTIC [Concomitant]
     Active Substance: PROBIOTICS NOS
  3. HUMIRA [Concomitant]
     Active Substance: ADALIMUMAB
  4. METHOTREXATE. [Concomitant]
     Active Substance: METHOTREXATE
  5. VIT C + D AND CALCIUM [Concomitant]
  6. LISINOPRIL?HYDRO??CHLOROTHIAZIDE [Concomitant]
  7. CHLORAPREP ONE?STEP [Suspect]
     Active Substance: CHLORHEXIDINE GLUCONATE\ISOPROPYL ALCOHOL
     Indication: ANTIBIOTIC PROPHYLAXIS
  8. FOLIC ACID. [Concomitant]
     Active Substance: FOLIC ACID
  9. VITAMIN B12 [Concomitant]
     Active Substance: CYANOCOBALAMIN

REACTIONS (2)
  - Drug hypersensitivity [None]
  - Injection site pain [None]

NARRATIVE: CASE EVENT DATE: 20201231
